FAERS Safety Report 4755418-4 (Version None)
Quarter: 2005Q3

REPORT INFORMATION
  Report Type: 
  Country: None (occurrence: None)
  Receive Date: 20050826
  Receipt Date: 20050826
  Transmission Date: 20060218
  Serious: No
  Sender: FDA-Public Use
  Company Number: None

PATIENT
  Age: 55 Year
  Weight: 113.3993 kg

DRUGS (11)
  1. OXYCODONE 40 MG CR TAB (ENDO) 60951-0705-70 [Suspect]
     Dates: start: 20050725, end: 20050726
  2. EFFEXOR XR [Concomitant]
  3. TOPROL-XL [Concomitant]
  4. HYDROCYCHLORQUINE [Concomitant]
  5. PROCHLORPERAZINE [Concomitant]
  6. TRIAMTERENE AND HYDROCHLOROTHIAZIDE [Concomitant]
  7. AMARYL [Concomitant]
  8. LANTAS INSULIN [Concomitant]
  9. DICYCLOMINE [Concomitant]
  10. HUMULIN R [Concomitant]
  11. PRILOSEC OTC [Concomitant]

REACTIONS (7)
  - ABDOMINAL PAIN [None]
  - CONDITION AGGRAVATED [None]
  - DIARRHOEA [None]
  - HYPERHIDROSIS [None]
  - MUSCLE SPASMS [None]
  - PAIN [None]
  - PHARMACEUTICAL PRODUCT COMPLAINT [None]
